FAERS Safety Report 10991783 (Version 3)
Quarter: 2015Q2

REPORT INFORMATION
  Report Type: Report from Study
  Country: IL (occurrence: IL)
  Receive Date: 20150406
  Receipt Date: 20150504
  Transmission Date: 20150821
  Serious: Yes (Hospitalization)
  Sender: FDA-Public Use
  Company Number: PHHO2015IL005281

PATIENT
  Age: 20 Year
  Sex: Male
  Weight: 52 kg

DRUGS (4)
  1. PLACEBO [Suspect]
     Active Substance: UNSPECIFIED INGREDIENT
     Indication: FAMILIAL MEDITERRANEAN FEVER
     Dosage: CODE NOT BROKEN
     Route: 058
     Dates: start: 20140917
  2. BLINDED ACZ885 [Suspect]
     Active Substance: CANAKINUMAB
     Indication: FAMILIAL MEDITERRANEAN FEVER
     Dosage: CODE NOT BROKEN
     Route: 058
     Dates: start: 20140917
  3. BLINDED NO TREATMENT RECEIVED [Suspect]
     Active Substance: UNSPECIFIED INGREDIENT
     Indication: FAMILIAL MEDITERRANEAN FEVER
     Dosage: CODE NOT BROKEN
     Route: 058
     Dates: start: 20140917
  4. COLCHICINE. [Concomitant]
     Active Substance: COLCHICINE
     Indication: FAMILIAL MEDITERRANEAN FEVER
     Dosage: 0.5 MG, TID
     Route: 065
     Dates: start: 1996

REACTIONS (2)
  - Pelvic abscess [Recovered/Resolved]
  - Cellulitis [Recovered/Resolved]

NARRATIVE: CASE EVENT DATE: 20150318
